FAERS Safety Report 14874565 (Version 1)
Quarter: 2018Q2

REPORT INFORMATION
  Report Type: Spontaneous
  Country: FR (occurrence: FR)
  Receive Date: 20180510
  Receipt Date: 20180510
  Transmission Date: 20180711
  Serious: Yes (Disabling)
  Sender: FDA-Public Use
  Company Number: FR-MERCK KGAA-2047541

PATIENT
  Age: 56 Year
  Sex: Female

DRUGS (1)
  1. NOVOTHYROX [Suspect]
     Active Substance: LEVOTHYROXINE SODIUM
     Indication: PRODUCT USED FOR UNKNOWN INDICATION
     Dates: start: 20170519

REACTIONS (24)
  - Gait disturbance [Not Recovered/Not Resolved]
  - Loss of personal independence in daily activities [Not Recovered/Not Resolved]
  - Vitamin D increased [Not Recovered/Not Resolved]
  - Palpitations [Not Recovered/Not Resolved]
  - Vertigo [Not Recovered/Not Resolved]
  - Fatigue [Not Recovered/Not Resolved]
  - Depression [Not Recovered/Not Resolved]
  - Occupational problem environmental [Not Recovered/Not Resolved]
  - Alopecia [Not Recovered/Not Resolved]
  - Hyperhidrosis [Not Recovered/Not Resolved]
  - Foot fracture [Not Recovered/Not Resolved]
  - Partner stress [Not Recovered/Not Resolved]
  - Feelings of worthlessness [Not Recovered/Not Resolved]
  - Blood cholesterol increased [Not Recovered/Not Resolved]
  - Psychiatric symptom [Not Recovered/Not Resolved]
  - Limb discomfort [Not Recovered/Not Resolved]
  - Hot flush [Not Recovered/Not Resolved]
  - Myalgia [Not Recovered/Not Resolved]
  - Ligament sprain [Not Recovered/Not Resolved]
  - Arthralgia [Not Recovered/Not Resolved]
  - Hypotension [Not Recovered/Not Resolved]
  - Skin odour abnormal [Not Recovered/Not Resolved]
  - Headache [Not Recovered/Not Resolved]
  - Complex regional pain syndrome [Not Recovered/Not Resolved]

NARRATIVE: CASE EVENT DATE: 2017
